FAERS Safety Report 12067188 (Version 1)
Quarter: 2016Q1

REPORT INFORMATION
  Report Type: Spontaneous
  Country: US (occurrence: None)
  Receive Date: 20160210
  Receipt Date: 20160210
  Transmission Date: 20160526
  Serious: Yes (Other)
  Sender: FDA-Public Use
  Company Number: None

PATIENT
  Age: 54 Year
  Sex: Female
  Weight: 74.84 kg

DRUGS (3)
  1. WELLBUTRIN 300 XL [Concomitant]
  2. OXYCODONE-ACETAMINOPHEN 5-325 MG AUROBINDO PHA [Suspect]
     Active Substance: ACETAMINOPHEN\OXYCODONE HYDROCHLORIDE
     Indication: RIB FRACTURE
     Dosage: 1-2 PILLS, AS NEEDED, TAKEN BY MOUTH
     Dates: start: 20160204, end: 20160205
  3. PROLOSEC [Concomitant]

REACTIONS (6)
  - Headache [None]
  - Drug ineffective [None]
  - Vomiting [None]
  - Pruritus [None]
  - Product substitution issue [None]
  - Agitation [None]

NARRATIVE: CASE EVENT DATE: 20160204
